FAERS Safety Report 5340266-7 (Version None)
Quarter: 2007Q2

REPORT INFORMATION
  Report Type: 
  Country: None (occurrence: None)
  Receive Date: 20070405
  Receipt Date: 20070115
  Transmission Date: 20071010
  Serious: Yes (Other)
  Sender: FDA-Public Use
  Company Number: US200611003384

PATIENT
  Age: 56 Year
  Sex: Female
  Weight: 95.2 kg

DRUGS (6)
  1. CYMBALTA [Suspect]
     Indication: NEUROPATHY PERIPHERAL
     Dosage: SEE IMAGE
  2. CYMBALTA [Suspect]
     Indication: NEUROPATHY PERIPHERAL
     Dosage: SEE IMAGE
     Dates: start: 20060511
  3. ULTRAM [Concomitant]
  4. HYZAAR [Concomitant]
  5. NORCO [Concomitant]
  6. ADIPEX [Concomitant]

REACTIONS (1)
  - RETINAL DETACHMENT [None]
